FAERS Safety Report 6126337-6 (Version None)
Quarter: 2009Q1

REPORT INFORMATION
  Report Type: 
  Country: None (occurrence: None)
  Receive Date: 20090320
  Receipt Date: 20090316
  Transmission Date: 20090719
  Serious: Yes (Hospitalization, Other)
  Sender: FDA-Public Use
  Company Number: US-ELI_LILLY_AND_COMPANY-US200903003796

PATIENT
  Sex: Male

DRUGS (8)
  1. HUMALOG [Suspect]
  2. LANTUS [Concomitant]
     Indication: DIABETES MELLITUS
     Dosage: 7 U, EACH EVENING
  3. HYDROCHLOROTHIAZIDE [Concomitant]
     Dosage: UNK, DAILY (1/D)
  4. LIPITOR [Concomitant]
     Dosage: 10 MG, DAILY (1/D)
  5. ASPIRIN [Concomitant]
     Indication: MYOCARDIAL INFARCTION
     Dosage: 375 MG, DAILY (1/D)
  6. LEVOTHYROXINE [Concomitant]
     Indication: THYROID DISORDER
  7. ALLERGY [Concomitant]
     Indication: MULTIPLE ALLERGIES
  8. METOPROLOL TARTRATE [Concomitant]
     Indication: MYOCARDIAL INFARCTION

REACTIONS (6)
  - ARTHRALGIA [None]
  - BLOOD GLUCOSE INCREASED [None]
  - CHONDROPATHY [None]
  - MYOCARDIAL INFARCTION [None]
  - THROMBOSIS [None]
  - THYROID DISORDER [None]
